FAERS Safety Report 18151213 (Version 1)
Quarter: 2020Q3

REPORT INFORMATION
  Report Type: Spontaneous
  Country: US (occurrence: US)
  Receive Date: 20200814
  Receipt Date: 20200814
  Transmission Date: 20201103
  Serious: No
  Sender: FDA-Public Use
  Company Number: US-009507513-2007USA008189

PATIENT
  Age: 74 Year
  Sex: Female

DRUGS (26)
  1. TIMOLOL. [Concomitant]
     Active Substance: TIMOLOL
     Dosage: UNK, BID
  2. ZETIA [Concomitant]
     Active Substance: EZETIMIBE
     Route: 048
  3. HYLANDS LEG CRAMPS PM [Concomitant]
  4. MAGNESIUM (UNSPECIFIED) [Concomitant]
     Active Substance: MAGNESIUM
  5. TURMERIC [Concomitant]
     Active Substance: HERBALS\TURMERIC
  6. VITAMIN E [Concomitant]
     Active Substance: .ALPHA.-TOCOPHEROL
  7. OXYBUTYNIN. [Concomitant]
     Active Substance: OXYBUTYNIN CHLORIDE
  8. LASIX [Concomitant]
     Active Substance: FUROSEMIDE
  9. PRINIVIL [Concomitant]
     Active Substance: LISINOPRIL
  10. DIAZEPAM. [Concomitant]
     Active Substance: DIAZEPAM
     Dosage: UNK, PRN
  11. POTASSIUM GLUCONATE [Concomitant]
     Active Substance: POTASSIUM GLUCONATE
  12. RITE AID DAIRY RELIEF [Concomitant]
  13. PROZAC [Concomitant]
     Active Substance: FLUOXETINE HYDROCHLORIDE
  14. CALCIUM CITRATE [Concomitant]
     Active Substance: CALCIUM CITRATE
  15. JANUVIA [Suspect]
     Active Substance: SITAGLIPTIN PHOSPHATE
     Indication: TYPE 2 DIABETES MELLITUS
     Dosage: 100 MG/ONE DAILY
     Route: 048
  16. GLIMEPIRIDE. [Concomitant]
     Active Substance: GLIMEPIRIDE
  17. LEVOTHYROXINE SODIUM. [Concomitant]
     Active Substance: LEVOTHYROXINE SODIUM
  18. MECLIZINE [Concomitant]
     Active Substance: MECLIZINE HYDROCHLORIDE
  19. XANTHOPHYLL [Concomitant]
  20. CVS CHEST CONGESTION RELIEF [Concomitant]
  21. GAS RELIEF SOFTGELS [Concomitant]
  22. CHOLECALCIFEROL [Concomitant]
     Active Substance: CHOLECALCIFEROL
  23. LATANOPROST. [Concomitant]
     Active Substance: LATANOPROST
     Dosage: Q DAY
  24. TRUSOPT [Concomitant]
     Active Substance: DORZOLAMIDE HYDROCHLORIDE
  25. FIBER [Concomitant]
     Active Substance: PSYLLIUM HUSK
  26. ZINC (UNSPECIFIED) [Concomitant]
     Active Substance: ZINC

REACTIONS (9)
  - Fatigue [Unknown]
  - Dizziness [Unknown]
  - Asthenia [Unknown]
  - Balance disorder [Unknown]
  - Hunger [Unknown]
  - Mobility decreased [Unknown]
  - Ill-defined disorder [Unknown]
  - Nausea [Unknown]
  - Diarrhoea [Not Recovered/Not Resolved]

NARRATIVE: CASE EVENT DATE: 20200711
